FAERS Safety Report 4924069-0 (Version None)
Quarter: 2006Q1

REPORT INFORMATION
  Report Type: 
  Country: None (occurrence: None)
  Receive Date: 20060227
  Receipt Date: 20051107
  Transmission Date: 20060701
  Serious: No
  Sender: FDA-Public Use
  Company Number: US-GLAXOSMITHKLINE-A0581223A

PATIENT
  Sex: Female

DRUGS (7)
  1. WELLBUTRIN XL [Suspect]
     Indication: DEPRESSION
     Dosage: 150MG UNKNOWN
     Route: 048
     Dates: start: 20051001
  2. ZOLOFT [Concomitant]
  3. ALLEGRA [Concomitant]
  4. FLONASE [Concomitant]
  5. SINGULAIR [Concomitant]
  6. PATANOL [Concomitant]
  7. GUAIFENESIN [Concomitant]

REACTIONS (2)
  - INCREASED APPETITE [None]
  - WEIGHT INCREASED [None]
